FAERS Safety Report 6131216-4 (Version None)
Quarter: 2009Q1

REPORT INFORMATION
  Report Type: 
  Country: None (occurrence: None)
  Receive Date: 20090325
  Receipt Date: 20090317
  Transmission Date: 20090719
  Serious: No
  Sender: FDA-Public Use
  Company Number: US-ELI_LILLY_AND_COMPANY-US200902004303

PATIENT
  Sex: Male

DRUGS (7)
  1. HUMALOG [Suspect]
     Indication: DIABETES MELLITUS
     Dosage: 10 U, 3/D
  2. LANTUS [Concomitant]
     Indication: DIABETES MELLITUS
     Dosage: 70 U, 2/D
  3. METFORMIN [Concomitant]
     Indication: DIABETES MELLITUS
  4. SINGULAIR [Concomitant]
     Indication: ASTHMA
  5. ADVAIR HFA [Concomitant]
     Indication: ASTHMA
  6. LISINOPRIL [Concomitant]
     Indication: HYPERTENSION
  7. ASPIRIN [Concomitant]

REACTIONS (2)
  - FALL [None]
  - PAIN [None]
